FAERS Safety Report 25433959 (Version 1)
Quarter: 2025Q2

REPORT INFORMATION
  Report Type: Spontaneous
  Country: ES (occurrence: ES)
  Receive Date: 20250613
  Receipt Date: 20250613
  Transmission Date: 20250716
  Serious: Yes (Life-Threatening)
  Sender: PFIZER
  Company Number: None

PATIENT
  Age: 48 Year
  Sex: Female
  Weight: 87 kg

DRUGS (9)
  1. RUXIENCE [Suspect]
     Active Substance: RITUXIMAB-PVVR
     Indication: Keratitis
     Route: 042
     Dates: start: 20250529, end: 20250529
  2. FOLIC ACID [Concomitant]
     Active Substance: FOLIC ACID
  3. GABAPENTIN [Concomitant]
     Active Substance: GABAPENTIN
  4. OMEPRAZOLE [Concomitant]
     Active Substance: OMEPRAZOLE
  5. DAPAGLIFLOZIN [Concomitant]
     Active Substance: DAPAGLIFLOZIN
  6. DULOXETINE [Concomitant]
     Active Substance: DULOXETINE
  7. CINACALCET HYDROCHLORIDE [Concomitant]
     Active Substance: CINACALCET HYDROCHLORIDE
  8. ATORVASTATIN\EZETIMIBE [Concomitant]
     Active Substance: ATORVASTATIN\EZETIMIBE
  9. PREDNISONE [Concomitant]
     Active Substance: PREDNISONE

REACTIONS (2)
  - Respiratory distress [Recovered/Resolved]
  - Tongue oedema [Recovered/Resolved]

NARRATIVE: CASE EVENT DATE: 20250529
